FAERS Safety Report 6443087-7 (Version None)
Quarter: 2009Q4

REPORT INFORMATION
  Report Type: 
  Country: None (occurrence: None)
  Receive Date: 20091117
  Receipt Date: 20090805
  Transmission Date: 20100525
  Serious: No
  Sender: FDA-Public Use
  Company Number: US-AMGEN-KDL358853

PATIENT
  Sex: Male

DRUGS (3)
  1. VECTIBIX [Suspect]
     Indication: COLORECTAL CANCER
  2. AVASTIN [Concomitant]
  3. IRINOTECAN HCL [Concomitant]

REACTIONS (3)
  - ACNE PUSTULAR [None]
  - INFECTION [None]
  - SKIN REACTION [None]
